FAERS Safety Report 8134331-9 (Version None)
Quarter: 2012Q1

REPORT INFORMATION
  Report Type: 
  Country: None (occurrence: None)
  Receive Date: 20120210
  Receipt Date: 20120131
  Transmission Date: 20120608
  Serious: Yes (Other)
  Sender: FDA-Public Use
  Company Number: 215734

PATIENT
  Age: 60 Year
  Sex: Male

DRUGS (1)
  1. DAIVONEX CREAM (CALCIPOTRIOL) (50 MCG, CREAM) [Suspect]
     Indication: PSORIASIS
     Dosage: (2 IN 1 D),TOPICAL
     Route: 061

REACTIONS (3)
  - VIOLENCE-RELATED SYMPTOM [None]
  - THINKING ABNORMAL [None]
  - HOMICIDAL IDEATION [None]
